FAERS Safety Report 18766734 (Version 1)
Quarter: 2021Q1

REPORT INFORMATION
  Report Type: Spontaneous
  Country: ES (occurrence: ES)
  Receive Date: 20210121
  Receipt Date: 20210121
  Transmission Date: 20210419
  Serious: Yes (Other)
  Sender: FDA-Public Use
  Company Number: ES-LUPIN PHARMACEUTICALS INC.-2021-00381

PATIENT
  Age: 49 Year
  Sex: Male

DRUGS (4)
  1. CEFADROXIL. [Suspect]
     Active Substance: CEFADROXIL
     Indication: PRODUCT USED FOR UNKNOWN INDICATION
     Dosage: UNK (CUMULATIVE DOSE OF 50 MG)
     Route: 048
  2. CEFUROXIME. [Concomitant]
     Active Substance: CEFUROXIME
     Indication: PRODUCT USED FOR UNKNOWN INDICATION
     Dosage: UNK
     Route: 048
  3. AMOXICILLIN/CLAVULANIC ACID [Suspect]
     Active Substance: AMOXICILLIN\CLAVULANIC ACID
     Indication: ANTIBIOTIC THERAPY
     Dosage: UNK
     Route: 065
  4. PENICILLIN V [PHENOXYMETHYLPENICILLIN] [Concomitant]
     Active Substance: PENICILLIN V
     Indication: PRODUCT USED FOR UNKNOWN INDICATION
     Dosage: UNK
     Route: 048

REACTIONS (1)
  - Therapeutic product cross-reactivity [Unknown]
